FAERS Safety Report 6697338-4 (Version None)
Quarter: 2010Q2

REPORT INFORMATION
  Report Type: 
  Country: None (occurrence: None)
  Receive Date: 20100426
  Receipt Date: 20100415
  Transmission Date: 20101027
  Serious: Yes (Other)
  Sender: FDA-Public Use
  Company Number: BR-PFIZER INC-2010047794

PATIENT
  Age: 42 Year
  Sex: Female

DRUGS (1)
  1. LYRICA [Suspect]
     Indication: BONE PAIN
     Dosage: 1 CAPSULE, EVERY 12 HOURS
     Route: 048
     Dates: start: 20100414

REACTIONS (6)
  - DIZZINESS [None]
  - INTERVERTEBRAL DISC PROTRUSION [None]
  - MUSCULAR WEAKNESS [None]
  - PALPITATIONS [None]
  - SOMNOLENCE [None]
  - TREMOR [None]
